FAERS Safety Report 19483593 (Version 1)
Quarter: 2021Q3

REPORT INFORMATION
  Report Type: Spontaneous
  Country: JP (occurrence: JP)
  Receive Date: 20210701
  Receipt Date: 20210701
  Transmission Date: 20211014
  Serious: Yes (Other)
  Sender: FDA-Public Use
  Company Number: JP-FERRINGPH-2021FE04215

PATIENT
  Age: 82 Year
  Sex: Male

DRUGS (2)
  1. GONAX [Suspect]
     Active Substance: DEGARELIX
     Indication: PROSTATE CANCER
     Dosage: UNK
     Route: 065
  2. APALUTAMIDE [Concomitant]
     Active Substance: APALUTAMIDE
     Route: 065

REACTIONS (1)
  - Interstitial lung disease [Unknown]
